FAERS Safety Report 25886847 (Version 1)
Quarter: 2025Q4

REPORT INFORMATION
  Report Type: Spontaneous
  Country: CN (occurrence: CN)
  Receive Date: 20251006
  Receipt Date: 20251006
  Transmission Date: 20260117
  Serious: Yes (Other)
  Sender: INNOVIVA
  Company Number: CN-INNOVIVA SPECIALTY THERAPEUTICS-2025-ISTX-000186

PATIENT

DRUGS (1)
  1. XACDURO [Suspect]
     Active Substance: DURLOBACTAM SODIUM\SULBACTAM SODIUM
     Indication: Product used for unknown indication
     Dosage: UNK
     Route: 065

REACTIONS (1)
  - Delirium [Unknown]
